FAERS Safety Report 16278851 (Version 1)
Quarter: 2019Q2

REPORT INFORMATION
  Report Type: Spontaneous
  Country: FR (occurrence: FR)
  Receive Date: 20190506
  Receipt Date: 20190506
  Transmission Date: 20190711
  Serious: Yes (Other)
  Sender: FDA-Public Use
  Company Number: FR-PFIZER INC-2019188387

PATIENT
  Age: 52 Year
  Sex: Male

DRUGS (4)
  1. MEPROBAMATE. [Suspect]
     Active Substance: MEPROBAMATE
     Dosage: 1 MG/ L
  2. MORPHINE SULFATE. [Suspect]
     Active Substance: MORPHINE SULFATE
     Dosage: 1 FLG / L
  3. CODEINE [Suspect]
     Active Substance: CODEINE
     Dosage: 109 FLG / L
  4. PREGABALIN. [Suspect]
     Active Substance: PREGABALIN
     Dosage: 3.8 MG/ L

REACTIONS (1)
  - Drug screen positive [Unknown]
